FAERS Safety Report 15978568 (Version 2)
Quarter: 2019Q3

REPORT INFORMATION
  Report Type: Spontaneous
  Country: CA (occurrence: CA)
  Receive Date: 20190219
  Receipt Date: 20190927
  Transmission Date: 20191004
  Serious: Yes (Hospitalization, Other)
  Sender: FDA-Public Use
  Company Number: CA-009507513-1902CAN006256

PATIENT
  Age: 61 Year
  Sex: Female
  Weight: 84 kg

DRUGS (50)
  1. EMEND [Suspect]
     Active Substance: APREPITANT
     Dosage: DOSE: 80 MILLIGRAM, FREQUENCY: 1 EVERY 1 DAY
     Route: 048
  2. DOXORUBICIN HYDROCHLORIDE. [Suspect]
     Active Substance: DOXORUBICIN HYDROCHLORIDE
     Dosage: FREQUENCY:1 EVERY 14 DAYS, ROUTE OF ADMINISTRATION: INTRAVENOUS (NOT OTHERWISE SPECIFIED)
     Route: 042
  3. PANTOPRAZOLE [Suspect]
     Active Substance: PANTOPRAZOLE
     Indication: PRODUCT USED FOR UNKNOWN INDICATION
     Dosage: DOSE: 40 MILLIGRAM, FREQUENCY: 1 EVERY 1 DAY
     Route: 048
  4. PEGFILGRASTIM [Suspect]
     Active Substance: PEGFILGRASTIM
     Indication: SUPPORTIVE CARE
     Dosage: 6 MILLIGRAM
     Route: 058
  5. PEGFILGRASTIM [Suspect]
     Active Substance: PEGFILGRASTIM
     Dosage: 6 MILLIGRAM
     Route: 058
  6. TAMIFLU [Suspect]
     Active Substance: OSELTAMIVIR PHOSPHATE
     Indication: ADVERSE EVENT
     Dosage: DOSE: 75 MILLIGRAM, FREQUENCY: 2 EVERY 1 DAY(S), DOSAGE FORM: NOT SPECIFIED
     Route: 065
  7. ACETAMINOPHEN. [Concomitant]
     Active Substance: ACETAMINOPHEN
     Indication: PRODUCT USED FOR UNKNOWN INDICATION
     Dosage: DOSE: 1300 MILLIGRAM, FREQUENCY: AS REQUIRED
     Route: 048
  8. EMEND [Suspect]
     Active Substance: APREPITANT
     Indication: SUPPORTIVE CARE
     Dosage: DOSE: 80 MILLIGRAM, FREQUENCY: 1 EVERY 1 DAY
     Route: 048
  9. EMEND [Suspect]
     Active Substance: APREPITANT
     Dosage: DOSE: 125 MILLIGRAM
     Route: 048
  10. DOXORUBICIN HYDROCHLORIDE. [Suspect]
     Active Substance: DOXORUBICIN HYDROCHLORIDE
     Indication: BREAST CANCER
     Dosage: FREQUENCY:1 EVERY 14 DAYS, ROUTE OF ADMINISTRATION: INTRAVENOUS (NOT OTHERWISE SPECIFIED)
     Route: 042
  11. LEVAQUIN [Suspect]
     Active Substance: LEVOFLOXACIN
     Indication: ADVERSE EVENT
     Dosage: DOSE: 500 MILLIGRAM, FREQUENCY: 1 EVERY 1 DAY
     Route: 048
  12. METOCLOPRAMIDE. [Suspect]
     Active Substance: METOCLOPRAMIDE
     Indication: PRODUCT USED FOR UNKNOWN INDICATION
     Dosage: DOSE:10 MILLIGRAM, FREQUENCY: 1 EVERY 1 DAY
     Route: 048
  13. ONDANSETRON [Suspect]
     Active Substance: ONDANSETRON
     Dosage: 8 MILLIGRAM
     Route: 048
  14. ONDANSETRON [Suspect]
     Active Substance: ONDANSETRON
     Dosage: 8 MILLIGRAM
     Route: 048
  15. PROCYTOX [Suspect]
     Active Substance: CYCLOPHOSPHAMIDE
     Dosage: DOSE: 1210 MILLIGRAM, FREQUENCY: 1 EVERY 14 DAY(S), ROUTE OF ADMINISTRATION: INTRAVENOUS (NOT OTHERW
     Route: 042
  16. PROCYTOX [Suspect]
     Active Substance: CYCLOPHOSPHAMIDE
     Dosage: DOSE: 1210 MILLIGRAM, FREQUENCY: 1 EVERY 14 DAY(S), ROUTE OF ADMINISTRATION: INTRAVENOUS (NOT OTHERW
     Route: 042
  17. TRASTUZUMAB. [Suspect]
     Active Substance: TRASTUZUMAB
     Indication: BREAST CANCER
     Dosage: UNK
     Route: 065
  18. GABAPENTIN. [Concomitant]
     Active Substance: GABAPENTIN
     Indication: PRODUCT USED FOR UNKNOWN INDICATION
     Dosage: FREQUENCY: AS REQUIRED
     Route: 048
  19. NAPROXEN. [Concomitant]
     Active Substance: NAPROXEN
     Indication: PRODUCT USED FOR UNKNOWN INDICATION
     Dosage: 220 MILLIGRAM, FREQUENCY: AS REQUIRED
     Route: 048
  20. PACLITAXEL. [Concomitant]
     Active Substance: PACLITAXEL
     Indication: BREAST CANCER
     Dosage: ROUTE OF ADMINISTRATION: UNKNOWN
     Route: 065
  21. VITAMIN D (UNSPECIFIED) [Concomitant]
     Active Substance: VITAMIN D NOS
     Indication: PRODUCT USED FOR UNKNOWN INDICATION
     Dosage: 2000.0 INTERNATIONAL UNIT, QD
     Route: 048
  22. EMEND [Suspect]
     Active Substance: APREPITANT
     Dosage: 800 MILLIGRAM, ONE EVERY ONE DAY.
     Route: 048
  23. PREDNISONE. [Suspect]
     Active Substance: PREDNISONE
     Dosage: 40 MILLIGRAM, QD, FREQUENCY: 1 EVERY 1 DAYS(S)
     Route: 065
  24. ONDANSETRON [Suspect]
     Active Substance: ONDANSETRON
     Indication: SUPPORTIVE CARE
     Dosage: 8 MILLIGRAM
     Route: 048
  25. ONDANSETRON [Suspect]
     Active Substance: ONDANSETRON
     Dosage: 8 MILLIGRAM
     Route: 048
  26. ONDANSETRON [Suspect]
     Active Substance: ONDANSETRON
     Dosage: 8 MILLIGRAM
     Route: 048
  27. DEXAMETHASONE. [Concomitant]
     Active Substance: DEXAMETHASONE
     Indication: SUPPORTIVE CARE
     Dosage: 20 MILLIGRAM, FREQUENCY: 1 EVERY 1 DAY
     Route: 048
  28. DEXAMETHASONE. [Concomitant]
     Active Substance: DEXAMETHASONE
     Dosage: 20 MILLIGRAM, FREQUENCY: 1 EVERY 1 DAY
     Route: 048
  29. EMEND [Suspect]
     Active Substance: APREPITANT
     Dosage: DOSE: 125 MILLIGRAM
     Route: 048
  30. DOXORUBICIN HYDROCHLORIDE. [Suspect]
     Active Substance: DOXORUBICIN HYDROCHLORIDE
     Dosage: FREQUENCY:1 EVERY 14 DAYS, ROUTE OF ADMINISTRATION: INTRAVENOUS (NOT OTHERWISE SPECIFIED)
     Route: 042
  31. DEXAMETHASONE. [Concomitant]
     Active Substance: DEXAMETHASONE
     Dosage: 20 MILLIGRAM, FREQUENCY: 1 EVERY 1 DAY
     Route: 048
  32. EMEND [Suspect]
     Active Substance: APREPITANT
     Dosage: DOSE: 80 MILLIGRAM, FREQUENCY: 1 EVERY 1 DAY
     Route: 048
  33. DOXORUBICIN HYDROCHLORIDE. [Suspect]
     Active Substance: DOXORUBICIN HYDROCHLORIDE
     Dosage: FREQUENCY:1 EVERY 14 DAYS, ROUTE OF ADMINISTRATION: INTRAVENOUS (NOT OTHERWISE SPECIFIED)
     Route: 042
  34. PEGFILGRASTIM [Suspect]
     Active Substance: PEGFILGRASTIM
     Dosage: 6 MILLIGRAM
     Route: 058
  35. PEGFILGRASTIM [Suspect]
     Active Substance: PEGFILGRASTIM
     Dosage: 6 MILLIGRAM
     Route: 058
  36. PROCYTOX [Suspect]
     Active Substance: CYCLOPHOSPHAMIDE
     Indication: BREAST CANCER
     Dosage: DOSE: 1210 MILLIGRAM, FREQUENCY: 1 EVERY 14 DAY(S), ROUTE OF ADMINISTRATION: INTRAVENOUS (NOT OTHERW
     Route: 042
  37. CITALOPRAM [Concomitant]
     Active Substance: CITALOPRAM HYDROBROMIDE
     Indication: PRODUCT USED FOR UNKNOWN INDICATION
     Dosage: 20 MILLIGRAM, FREQUENCY: 1 EVERY 1 DAY
     Route: 048
  38. EMEND [Suspect]
     Active Substance: APREPITANT
     Dosage: DOSE: 125 MILLIGRAM
     Route: 048
  39. PEGFILGRASTIM [Suspect]
     Active Substance: PEGFILGRASTIM
     Dosage: 6 MILLIGRAM
     Route: 058
  40. PEGFILGRASTIM [Suspect]
     Active Substance: PEGFILGRASTIM
     Dosage: 6 MILLIGRAM
     Route: 058
  41. EMEND [Suspect]
     Active Substance: APREPITANT
     Dosage: DOSE: 80 MILLIGRAM, FREQUENCY: 1 EVERY 1 DAY
     Route: 048
  42. EMEND [Suspect]
     Active Substance: APREPITANT
     Dosage: DOSE: 125 MILLIGRAM
     Route: 048
  43. ONDANSETRON [Suspect]
     Active Substance: ONDANSETRON
     Dosage: 8 MILLIGRAM
     Route: 048
  44. PACLITAXEL. [Concomitant]
     Active Substance: PACLITAXEL
     Dosage: UNK
     Route: 042
  45. PREDNISONE. [Suspect]
     Active Substance: PREDNISONE
     Indication: ADVERSE EVENT
     Dosage: DOSE:30 MILLIGRAM, FREQUENCY: 1 EVERY 1 DAYS(S)
     Route: 065
  46. ONDANSETRON [Suspect]
     Active Substance: ONDANSETRON
     Dosage: 8 MILLIGRAM
     Route: 048
  47. ONDANSETRON [Suspect]
     Active Substance: ONDANSETRON
     Dosage: 8 MILLIGRAM
     Route: 048
  48. PEGFILGRASTIM [Suspect]
     Active Substance: PEGFILGRASTIM
     Dosage: 6 MILLIGRAM
     Route: 058
  49. PROCYTOX [Suspect]
     Active Substance: CYCLOPHOSPHAMIDE
     Dosage: DOSE: 1210 MILLIGRAM, FREQUENCY: 1 EVERY 14 DAY(S), ROUTE OF ADMINISTRATION: INTRAVENOUS (NOT OTHERW
     Route: 042
  50. HYDROMORPHONE [Concomitant]
     Active Substance: HYDROMORPHONE
     Indication: PRODUCT USED FOR UNKNOWN INDICATION
     Dosage: 2 MILLIGRAM, FREQUENCY: AS REQUIRED
     Route: 048

REACTIONS (8)
  - Gastrointestinal disorder [Recovering/Resolving]
  - Respiratory failure [Recovering/Resolving]
  - Decreased appetite [Recovering/Resolving]
  - Asthenia [Recovering/Resolving]
  - Nausea [Recovering/Resolving]
  - Atelectasis [Recovering/Resolving]
  - Dyspnoea [Recovering/Resolving]
  - Respiratory syncytial virus infection [Recovering/Resolving]
